FAERS Safety Report 20997000 (Version 1)
Quarter: 2022Q2

REPORT INFORMATION
  Report Type: Spontaneous
  Country: FR (occurrence: FR)
  Receive Date: 20220623
  Receipt Date: 20220623
  Transmission Date: 20220720
  Serious: Yes (Life-Threatening, Other)
  Sender: FDA-Public Use
  Company Number: FR-DENTSPLY-2022SCDP000169

PATIENT
  Age: 51 Year
  Sex: Female
  Weight: 78 kg

DRUGS (4)
  1. EPINEPHRINE BITARTRATE\LIDOCAINE HYDROCHLORIDE [Suspect]
     Active Substance: EPINEPHRINE BITARTRATE\LIDOCAINE HYDROCHLORIDE
     Indication: Induction of anaesthesia
     Dosage: UNK
     Dates: start: 20220529
  2. SUFENTANIL [Suspect]
     Active Substance: SUFENTANIL
     Indication: Induction of anaesthesia
     Dosage: UNK
     Dates: start: 20220529
  3. DIPRIVAN [Suspect]
     Active Substance: PROPOFOL
     Indication: Induction of anaesthesia
     Dosage: UNK
     Dates: start: 20220529
  4. ROCURONIUM BROMIDE [Suspect]
     Active Substance: ROCURONIUM BROMIDE
     Indication: Induction of anaesthesia
     Dosage: UNK
     Dates: start: 20220529

REACTIONS (1)
  - Anaphylactic shock [Recovered/Resolved]

NARRATIVE: CASE EVENT DATE: 20220529
